FAERS Safety Report 6077800-8 (Version None)
Quarter: 2009Q1

REPORT INFORMATION
  Report Type: 
  Country: None (occurrence: None)
  Receive Date: 20090213
  Receipt Date: 20090202
  Transmission Date: 20090719
  Serious: Yes (Other)
  Sender: FDA-Public Use
  Company Number: US-PFIZER INC-2008053910

PATIENT
  Sex: Female

DRUGS (6)
  1. NEURONTIN [Suspect]
     Dosage: 600 MG, 3X/DAY
     Dates: start: 19980801, end: 20060501
  2. DURAGESIC-100 [Concomitant]
     Dosage: 50 MG, ALTERNATE DAY
     Dates: start: 19970501
  3. PHENERGAN ^AVENTIS PHARMA^ [Concomitant]
     Dosage: 50 MG, 3X/DAY
     Dates: start: 20000101
  4. TYLOX [Concomitant]
     Dosage: UNK
     Dates: start: 20000101
  5. ANTIVERT ^PFIZER^ [Concomitant]
     Indication: VERTIGO
     Dosage: 25 MG, AS NEEDED
     Dates: start: 20010101
  6. SOMA [Concomitant]
     Indication: MUSCULOSKELETAL PAIN
     Dosage: 350 MG, UNK
     Dates: start: 19980101

REACTIONS (5)
  - COMPLEX REGIONAL PAIN SYNDROME [None]
  - DENTAL CARIES [None]
  - ENAMEL ANOMALY [None]
  - MASTICATION DISORDER [None]
  - TOOTH FRACTURE [None]
